FAERS Safety Report 5527274-8 (Version None)
Quarter: 2007Q4

REPORT INFORMATION
  Report Type: 
  Country: None (occurrence: None)
  Receive Date: 20071121
  Receipt Date: 20071109
  Transmission Date: 20080405
  Serious: Yes (Hospitalization)
  Sender: FDA-Public Use
  Company Number: B0496049A

PATIENT
  Age: 57 Year
  Sex: Female

DRUGS (5)
  1. NARATRIPTAN HYDROCHLORIDE (FORMULATION UNKNOWN) (GENERIC) (NARATRIPTAN [Suspect]
  2. METHYSERGIDE (FORMULATION UNKNOWN) (METHYSERGIDE) [Suspect]
  3. VENLAFAXINE HCL [Suspect]
  4. OXYCODONE HCL [Suspect]
  5. TRAMADOL HCL [Suspect]

REACTIONS (3)
  - DRUG INTERACTION [None]
  - SEROTONIN SYNDROME [None]
  - TREMOR [None]
